FAERS Safety Report 6590359-1 (Version None)
Quarter: 2010Q1

REPORT INFORMATION
  Report Type: 
  Country: None (occurrence: None)
  Receive Date: 20100212
  Receipt Date: 20100127
  Transmission Date: 20100710
  Serious: Yes (Other)
  Sender: FDA-Public Use
  Company Number: 230887J10USA

PATIENT
  Age: 48 Year

DRUGS (2)
  1. REBIF [Suspect]
     Indication: MULTIPLE SCLEROSIS
     Dosage: NOT RESPONED, NOT RESPONED, NOT
     Dates: start: 20030913, end: 20090701
  2. NOVANTRONE [Suspect]
     Indication: MULTIPLE SCLEROSIS
     Dosage: NOT RESPONED, NOT RESPONED, NOT
     Dates: start: 20080101, end: 20080901

REACTIONS (1)
  - UTERINE CANCER [None]
